FAERS Safety Report 6919562-5 (Version None)
Quarter: 2010Q3

REPORT INFORMATION
  Report Type: 
  Country: None (occurrence: None)
  Receive Date: 20100810
  Receipt Date: 20100810
  Transmission Date: 20110219
  Serious: No
  Sender: FDA-Public Use
  Company Number: None

PATIENT
  Age: 25 Year
  Sex: Female

DRUGS (3)
  1. SERTRALINE 100MG [Suspect]
     Indication: BIPOLAR DISORDER
     Dosage: 100MG TWICE DAILY PO
     Route: 048
     Dates: start: 20091103, end: 20091111
  2. SERTRALINE 100MG [Suspect]
     Indication: DEPRESSION
     Dosage: 100MG TWICE DAILY PO
     Route: 048
     Dates: start: 20091103, end: 20091111
  3. GEODON [Suspect]
     Dosage: 60MG 3 CAPS DAILY PO
     Route: 048

REACTIONS (2)
  - ABDOMINAL DISCOMFORT [None]
  - DRUG INEFFECTIVE [None]
